FAERS Safety Report 10340777 (Version 1)
Quarter: 2014Q3

REPORT INFORMATION
  Report Type: Spontaneous
  Country: US (occurrence: US)
  Receive Date: 20140724
  Receipt Date: 20140724
  Transmission Date: 20150326
  Serious: Yes (Other)
  Sender: FDA-Public Use
  Company Number: CHPA2014US009744

PATIENT
  Age: 75 Year

DRUGS (1)
  1. 4 WAY MENTHOLATED NASAL SPRAY [Suspect]
     Active Substance: XYLOMETAZOLINE
     Indication: NASAL CONGESTION
     Dosage: UNK UNK, PRN

REACTIONS (4)
  - Upper-airway cough syndrome [Recovered/Resolved]
  - Pharyngitis [Not Recovered/Not Resolved]
  - Oropharyngeal pain [Not Recovered/Not Resolved]
  - Acute sinusitis [Not Recovered/Not Resolved]

NARRATIVE: CASE EVENT DATE: 20140718
